FAERS Safety Report 24014291 (Version 1)
Quarter: 2024Q2

REPORT INFORMATION
  Report Type: Report from Study
  Country: IT (occurrence: IT)
  Receive Date: 20240626
  Receipt Date: 20240626
  Transmission Date: 20240716
  Serious: Yes (Other)
  Sender: FDA-Public Use
  Company Number: None

PATIENT

DRUGS (9)
  1. PEGASPARGASE [Suspect]
     Active Substance: PEGASPARGASE
     Indication: T-cell type acute leukaemia
     Dosage: 3750 IU IN 100 NACL 0.9% IN 120 MIN
     Route: 042
     Dates: start: 20240429, end: 20240429
  2. PEGASPARGASE [Suspect]
     Active Substance: PEGASPARGASE
     Dosage: 3750 IU INFUSION IN 500 ML NACL 0.9% IN 120 MIN
     Route: 042
     Dates: start: 20240513, end: 20240513
  3. DECADRON [Concomitant]
     Active Substance: DEXAMETHASONE
     Indication: T-cell type acute leukaemia
     Dosage: 13 MG / DAY
     Route: 042
     Dates: start: 20240424, end: 20240514
  4. DECADRON [Concomitant]
     Active Substance: DEXAMETHASONE
     Dosage: 3.5 MG X 3 TIMES/DAY
     Route: 042
     Dates: start: 20240515, end: 20240517
  5. DECADRON [Concomitant]
     Active Substance: DEXAMETHASONE
     Dosage: 2 MG X 3 TIMES/DAY
     Route: 042
     Dates: start: 20240518, end: 20240520
  6. DECADRON [Concomitant]
     Active Substance: DEXAMETHASONE
     Dosage: 1.5 MG X 3 TIMES/DAY
     Route: 042
     Dates: start: 20240521, end: 20240523
  7. DAUNORUBICIN [Concomitant]
     Active Substance: DAUNORUBICIN
     Indication: Precursor T-lymphoblastic leukaemia acute
     Dosage: 60 MG/DAY
     Route: 042
     Dates: start: 20240516, end: 20240516
  8. VINCRISTINE [Concomitant]
     Active Substance: VINCRISTINE
     Indication: T-cell type acute leukaemia
     Dosage: 2 MG/DAY
     Route: 042
     Dates: start: 20240516, end: 20240516
  9. FAMOTIDINE [Concomitant]
     Active Substance: FAMOTIDINE
     Indication: Prophylaxis
     Dosage: 20 MG/DAY
     Route: 048
     Dates: start: 20240424, end: 20240527

REACTIONS (6)
  - Pancytopenia [Not Recovered/Not Resolved]
  - Hyperbilirubinaemia [Recovering/Resolving]
  - Axillary vein thrombosis [Recovering/Resolving]
  - Hypoalbuminaemia [Recovering/Resolving]
  - Anaemia [Recovering/Resolving]
  - Abdominal pain [Recovered/Resolved]

NARRATIVE: CASE EVENT DATE: 20240506
